FAERS Safety Report 8371215-5 (Version None)
Quarter: 2012Q2

REPORT INFORMATION
  Report Type: 
  Country: None (occurrence: None)
  Receive Date: 20120518
  Receipt Date: 20120515
  Transmission Date: 20120825
  Serious: Yes (Hospitalization, Other)
  Sender: FDA-Public Use
  Company Number: PHHY2012NL029527

PATIENT
  Sex: Female

DRUGS (9)
  1. ZOMETA [Suspect]
     Indication: BREAST CANCER METASTATIC
     Dosage: 4 MG/100 ML, 1X PER 42 DAYS IN 20 MINUTES
     Route: 042
  2. ZOMETA [Suspect]
     Dosage: 4 MG/100 ML, 1X PER 42 DAYS IN 20 MINUTES
     Route: 042
     Dates: start: 20120515
  3. ZOMETA [Suspect]
     Dosage: 4 MG/100 ML, 1X PER 42 DAYS IN 20 MINUTES
     Route: 042
     Dates: start: 20120405
  4. CODEINE SULFATE [Concomitant]
     Dosage: 20 MG, UNK
  5. ACETAMINOPHEN [Concomitant]
     Dosage: 500 MG (1000MG, WHEN NECESSARY)
  6. ZOMETA [Suspect]
     Dosage: 4 MG/100 ML, 1X PER 42 DAYS IN 20 MINUTES
     Route: 042
     Dates: start: 20091015
  7. ZOMETA [Suspect]
     Dosage: 4 MG/100 ML, 1X PER 42 DAYS IN 20 MINUTES
     Route: 042
     Dates: start: 20120223
  8. TIMOLOL MALEATE [Suspect]
     Indication: GLAUCOMA
  9. ARIMIDEX [Concomitant]

REACTIONS (7)
  - HYPERSENSITIVITY [None]
  - COUGH [None]
  - FATIGUE [None]
  - PLEURAL EFFUSION [None]
  - NEOPLASM PROGRESSION [None]
  - WEIGHT DECREASED [None]
  - NEOPLASM MALIGNANT [None]
